FAERS Safety Report 15143663 (Version 2)
Quarter: 2018Q3

REPORT INFORMATION
  Report Type: Spontaneous
  Country: US (occurrence: US)
  Receive Date: 20180713
  Receipt Date: 20180717
  Transmission Date: 20181010
  Serious: Yes (Other)
  Sender: FDA-Public Use
  Company Number: US-PFIZER INC-2018279700

PATIENT
  Age: 82 Year
  Sex: Female
  Weight: 58.96 kg

DRUGS (1)
  1. IBRANCE [Suspect]
     Active Substance: PALBOCICLIB
     Indication: BREAST CANCER METASTATIC
     Dosage: 100 MG, CYCLIC (21 DAYS ON AND 7 DAYS OFF) (I GET ONLY ONE PILL DELIVERED TO ME EVERY MORNING)
     Route: 048
     Dates: start: 20180331

REACTIONS (9)
  - Cardiac disorder [Unknown]
  - Full blood count decreased [Not Recovered/Not Resolved]
  - Coeliac disease [Unknown]
  - Diarrhoea [Unknown]
  - Constipation [Unknown]
  - White blood cell count decreased [Not Recovered/Not Resolved]
  - Body height decreased [Unknown]
  - Red blood cell count decreased [Unknown]
  - Blood potassium increased [Unknown]

NARRATIVE: CASE EVENT DATE: 20180414
